FAERS Safety Report 14029411 (Version 1)
Quarter: 2017Q4

REPORT INFORMATION
  Report Type: Spontaneous
  Country: US (occurrence: US)
  Receive Date: 20171002
  Receipt Date: 20171002
  Transmission Date: 20180321
  Serious: No
  Sender: FDA-Public Use
  Company Number: US-JAZZ-2017-US-011175

PATIENT
  Sex: Female

DRUGS (33)
  1. CESAMET [Concomitant]
     Active Substance: NABILONE
  2. HUMIRA [Concomitant]
     Active Substance: ADALIMUMAB
  3. DORYX                              /00055701/ [Concomitant]
  4. CYTOMEL [Concomitant]
     Active Substance: LIOTHYRONINE SODIUM
  5. CEREFOLIN NAC                      /06235601/ [Concomitant]
  6. ENBREL [Concomitant]
     Active Substance: ETANERCEPT
  7. METRONIDAZOLE. [Concomitant]
     Active Substance: METRONIDAZOLE
  8. NAPROXEN. [Concomitant]
     Active Substance: NAPROXEN
  9. ZOLOFT [Concomitant]
     Active Substance: SERTRALINE HYDROCHLORIDE
  10. HYDROCODONE [Concomitant]
     Active Substance: HYDROCODONE
  11. BETAMETHASONE. [Concomitant]
     Active Substance: BETAMETHASONE
  12. MACROBID [Concomitant]
     Active Substance: NITROFURANTOIN\NITROFURANTOIN MONOHYDRATE
  13. NEURONTIN [Concomitant]
     Active Substance: GABAPENTIN
  14. LIMBREL [Concomitant]
     Active Substance: DIETARY SUPPLEMENT\FLAVOCOXID
  15. TOPAMAX [Concomitant]
     Active Substance: TOPIRAMATE
  16. RITALIN [Concomitant]
     Active Substance: METHYLPHENIDATE HYDROCHLORIDE
  17. AMBIEN [Concomitant]
     Active Substance: ZOLPIDEM TARTRATE
  18. XYREM [Suspect]
     Active Substance: SODIUM OXYBATE
     Dosage: 5.25 G, BID
     Route: 048
     Dates: start: 201411, end: 201509
  19. XYREM [Suspect]
     Active Substance: SODIUM OXYBATE
     Dosage: 4.5 G, BID
     Route: 048
     Dates: start: 201611
  20. XYREM [Suspect]
     Active Substance: SODIUM OXYBATE
     Indication: CATAPLEXY
     Dosage: 3.75G, BID
     Route: 048
     Dates: start: 200808, end: 200809
  21. XYREM [Suspect]
     Active Substance: SODIUM OXYBATE
     Dosage: 4.5G, BID
     Route: 048
     Dates: start: 200810, end: 201009
  22. FENTANYL. [Concomitant]
     Active Substance: FENTANYL
  23. PROVIGIL [Concomitant]
     Active Substance: MODAFINIL
  24. NYSTATIN. [Concomitant]
     Active Substance: NYSTATIN
  25. VITAMIN D3 [Concomitant]
     Active Substance: CHOLECALCIFEROL
  26. OXYCODONE HYDROCHLORIDE. [Concomitant]
     Active Substance: OXYCODONE HYDROCHLORIDE
  27. XANAX [Concomitant]
     Active Substance: ALPRAZOLAM
  28. XYREM [Suspect]
     Active Substance: SODIUM OXYBATE
     Indication: NARCOLEPSY
     Dosage: 3G, BID
     Route: 048
     Dates: start: 200808, end: 200808
  29. TIZANIDINE. [Concomitant]
     Active Substance: TIZANIDINE
  30. XYREM [Suspect]
     Active Substance: SODIUM OXYBATE
     Dosage: 4.5 G, BID
     Route: 048
     Dates: start: 201202, end: 201401
  31. NUVIGIL [Concomitant]
     Active Substance: ARMODAFINIL
  32. NATURE-THROID [Concomitant]
     Active Substance: THYROID, PORCINE
  33. PINDOLOL. [Concomitant]
     Active Substance: PINDOLOL

REACTIONS (4)
  - Stress [Unknown]
  - Weight decreased [Recovering/Resolving]
  - Eating disorder [Unknown]
  - Pre-existing condition improved [Unknown]
